FAERS Safety Report 5761664-3 (Version None)
Quarter: 2008Q2

REPORT INFORMATION
  Report Type: 
  Country: None (occurrence: None)
  Receive Date: 20080606
  Receipt Date: 20080529
  Transmission Date: 20081010
  Serious: Yes (Hospitalization)
  Sender: FDA-Public Use
  Company Number: CA-MERCK-0804CAN00049

PATIENT
  Age: 81 Year
  Sex: Female

DRUGS (3)
  1. FOSAMAX [Suspect]
     Indication: OSTEOPOROSIS
     Route: 048
     Dates: start: 20040101
  2. CALCIUM CARBONATE AND ETIDRONATE SODIUM [Suspect]
     Route: 065
  3. RISEDRONATE SODIUM [Suspect]
     Route: 065

REACTIONS (7)
  - ARTHRALGIA [None]
  - BONE PAIN [None]
  - DENTAL CARIES [None]
  - FLATULENCE [None]
  - GASTROINTESTINAL DISORDER [None]
  - MYOCARDIAL INFARCTION [None]
  - VERTEBRAL INJURY [None]
